FAERS Safety Report 8239952-0 (Version None)
Quarter: 2012Q1

REPORT INFORMATION
  Report Type: 
  Country: None (occurrence: None)
  Receive Date: 20120328
  Receipt Date: 20120320
  Transmission Date: 20120608
  Serious: Yes (Other)
  Sender: FDA-Public Use
  Company Number: SZ-B.I. PHARMACEUTICALS,INC./RIDGEFIELD-2012-EU-01586GD

PATIENT

DRUGS (3)
  1. STAVUDINE [Suspect]
     Indication: HIV INFECTION
  2. NEVIRAPINE [Suspect]
     Indication: HIV INFECTION
  3. LAMIVUDINE [Suspect]
     Indication: HIV INFECTION

REACTIONS (1)
  - LACTIC ACIDOSIS [None]
